FAERS Safety Report 18103173 (Version 4)
Quarter: 2020Q3

REPORT INFORMATION
  Report Type: Spontaneous
  Country: IT (occurrence: IT)
  Receive Date: 20200803
  Receipt Date: 20200925
  Transmission Date: 20201103
  Serious: Yes (Death, Other)
  Sender: FDA-Public Use
  Company Number: IT-ASTELLAS-2020US025184

PATIENT
  Age: 71 Year
  Sex: Male

DRUGS (14)
  1. TRANEX [Concomitant]
     Active Substance: TRANEXAMIC ACID
     Indication: PRODUCT USED FOR UNKNOWN INDICATION
     Dosage: 500 MG, UNKNOWN FREQ. (2 FL X 3)
     Route: 065
  2. INSULIN RAPID [Concomitant]
     Active Substance: INSULIN NOS
     Indication: PRODUCT USED FOR UNKNOWN INDICATION
     Dosage: 8 UNITS FOR LUNCH AND DINNER, TWICE DAILY
     Route: 065
  3. SIMVASTATINA [Concomitant]
     Active Substance: SIMVASTATIN
     Indication: PRODUCT USED FOR UNKNOWN INDICATION
     Dosage: 20 MG (1 CAPSULE), UNKNOWN FREQ.
     Route: 065
  4. GILTERITINIB [Suspect]
     Active Substance: GILTERITINIB
     Indication: ACUTE MYELOID LEUKAEMIA
     Dosage: 120 MG (40 MGX3), ONCE DAILY
     Route: 048
     Dates: start: 20200701, end: 20200720
  5. GILTERITINIB [Suspect]
     Active Substance: GILTERITINIB
     Route: 048
     Dates: end: 20200728
  6. LANSOPRAZOLO [Concomitant]
     Active Substance: LANSOPRAZOLE
     Indication: PRODUCT USED FOR UNKNOWN INDICATION
     Dosage: 15 MG (1 CAPSULE), UNKNOWN FREQ.
     Route: 065
  7. AMLODIPINA [AMLODIPINE] [Concomitant]
     Active Substance: AMLODIPINE BESYLATE
     Indication: PRODUCT USED FOR UNKNOWN INDICATION
     Dosage: 10 MG (1 CAPSULE), UNKNOWN FREQ.
     Route: 065
  8. LOBIVON [Concomitant]
     Active Substance: NEBIVOLOL HYDROCHLORIDE
     Indication: PRODUCT USED FOR UNKNOWN INDICATION
     Dosage: 5 MG (1 CAPSULE), UNKNOWN FREQ.
     Route: 065
  9. EUTIROX [Concomitant]
     Active Substance: LEVOTHYROXINE SODIUM
     Indication: PRODUCT USED FOR UNKNOWN INDICATION
     Route: 065
  10. KARVEA [Concomitant]
     Active Substance: IRBESARTAN
     Indication: PRODUCT USED FOR UNKNOWN INDICATION
     Dosage: 0.5 DF (0.5 CAPSULE), UNKNOWN FREQ.
     Route: 065
  11. METFORMINA [METFORMIN] [Concomitant]
     Active Substance: METFORMIN HYDROCHLORIDE
     Indication: PRODUCT USED FOR UNKNOWN INDICATION
     Dosage: 1000 MG (1 CAPSULE), TWICE DAILY (AFTER LUNCH AND DINNER, SUSPENDED)
     Route: 065
  12. BACTRIM [Concomitant]
     Active Substance: SULFAMETHOXAZOLE\TRIMETHOPRIM
     Indication: PRODUCT USED FOR UNKNOWN INDICATION
     Dosage: 1 DF (1 CAPSULE), UNKNOWN FREQ.(2 (S?D))
     Route: 065
  13. ALLOPURINOLO [Concomitant]
     Active Substance: ALLOPURINOL
     Indication: PRODUCT USED FOR UNKNOWN INDICATION
     Dosage: 0.5 DF (0.5 CAPSULE), UNKNOWN FREQ.
     Route: 065
  14. INSULIN RAPID [Concomitant]
     Active Substance: INSULIN NOS
     Dosage: 5 UNITS FAST INSULIN FOR BREAKFAST, ONCE DAILY
     Route: 065

REACTIONS (6)
  - Syncope [Recovered/Resolved]
  - Klebsiella sepsis [Fatal]
  - Febrile neutropenia [Not Recovered/Not Resolved]
  - Epilepsy [Recovered/Resolved]
  - Acute myeloid leukaemia [Fatal]
  - Subdural haematoma [Not Recovered/Not Resolved]

NARRATIVE: CASE EVENT DATE: 20200728
